FAERS Safety Report 7302799-3 (Version None)
Quarter: 2011Q1

REPORT INFORMATION
  Report Type: 
  Country: None (occurrence: None)
  Receive Date: 20110218
  Receipt Date: 20101027
  Transmission Date: 20110831
  Serious: No
  Sender: FDA-Public Use
  Company Number: US-BAYER-201023185BCC

PATIENT
  Sex: Female
  Weight: 72.727 kg

DRUGS (3)
  1. LOVAZA [Concomitant]
  2. ALEVE [Suspect]
     Dosage: UNK
     Dates: start: 20101023
  3. ONE-A-DAY WOMEN'S 50 + ADVANTAGE [Concomitant]
     Indication: VITAMIN SUPPLEMENTATION
     Dosage: 1 DF, QD
     Route: 048

REACTIONS (1)
  - PRURITUS [None]
